FAERS Safety Report 5691444-9 (Version None)
Quarter: 2008Q2

REPORT INFORMATION
  Report Type: 
  Country: None (occurrence: None)
  Receive Date: 20080401
  Receipt Date: 20080401
  Transmission Date: 20081010
  Serious: Yes (Other)
  Sender: FDA-Public Use
  Company Number: None

PATIENT
  Age: 46 Year
  Sex: Female
  Weight: 78.0187 kg

DRUGS (3)
  1. SINGULAIR [Suspect]
     Indication: ASTHMA
     Dosage: 1 TABLET  ONCE A DAY  PO
     Route: 048
     Dates: start: 20050301, end: 20080328
  2. SINGULAIR [Suspect]
     Indication: MULTIPLE ALLERGIES
     Dosage: 1 TABLET  ONCE A DAY  PO
     Route: 048
     Dates: start: 20050301, end: 20080328
  3. ALLEGRA [Concomitant]

REACTIONS (2)
  - DEPRESSION [None]
  - LETHARGY [None]
